FAERS Safety Report 6516280-2 (Version None)
Quarter: 2009Q4

REPORT INFORMATION
  Report Type: 
  Country: None (occurrence: None)
  Receive Date: 20091223
  Receipt Date: 20091215
  Transmission Date: 20100525
  Serious: Yes (Hospitalization)
  Sender: FDA-Public Use
  Company Number: GB-ROCHE-675182

PATIENT
  Sex: Female

DRUGS (3)
  1. TRASTUZUMAB [Suspect]
     Dosage: LOADING DOSE
     Route: 042
     Dates: start: 20090612
  2. TRASTUZUMAB [Suspect]
     Route: 042
     Dates: start: 20090612
  3. ANASTROZOLE [Concomitant]
     Dates: start: 20090325

REACTIONS (2)
  - EJECTION FRACTION DECREASED [None]
  - INTRACARDIAC THROMBUS [None]
